FAERS Safety Report 4453094-1 (Version None)
Quarter: 2004Q3

REPORT INFORMATION
  Report Type: 
  Country: None (occurrence: None)
  Receive Date: 20040813
  Receipt Date: 20040526
  Transmission Date: 20050211
  Serious: No
  Sender: FDA-Public Use
  Company Number: S04-USA-03441-01

PATIENT
  Age: 52 Year
  Sex: Male

DRUGS (8)
  1. NAMENDA [Suspect]
     Indication: AMNESIA
     Dosage: 5 MG QD PO
     Route: 048
     Dates: start: 20040425, end: 20040501
  2. NAMENDA [Suspect]
     Indication: LYME DISEASE
     Dosage: 5 MG QD PO
     Route: 048
     Dates: start: 20040425, end: 20040501
  3. NAMENDA [Suspect]
     Indication: AMNESIA
     Dosage: 10 MG QD PO
     Route: 048
     Dates: start: 20040502, end: 20040508
  4. NAMENDA [Suspect]
     Indication: LYME DISEASE
     Dosage: 10 MG QD PO
     Route: 048
     Dates: start: 20040502, end: 20040508
  5. NAMENDA [Suspect]
     Indication: AMNESIA
     Dosage: 15 MG QD PO
     Route: 048
     Dates: start: 20040509, end: 20040515
  6. NAMENDA [Suspect]
     Indication: LYME DISEASE
     Dosage: 15 MG QD PO
     Route: 048
     Dates: start: 20040509, end: 20040515
  7. NAMENDA [Suspect]
     Indication: AMNESIA
     Dosage: 20 MG QD PO
     Route: 048
     Dates: start: 20040516
  8. NAMENDA [Suspect]
     Indication: LYME DISEASE
     Dosage: 20 MG QD PO
     Route: 048
     Dates: start: 20040516

REACTIONS (1)
  - BLOOD GLUCOSE DECREASED [None]
